FAERS Safety Report 7444436-3 (Version None)
Quarter: 2011Q2

REPORT INFORMATION
  Report Type: 
  Country: None (occurrence: None)
  Receive Date: 20110429
  Receipt Date: 20110415
  Transmission Date: 20111010
  Serious: Yes (Other)
  Sender: FDA-Public Use
  Company Number: US-ENDO PHARMACEUTICALS INC.-ALLO20110001

PATIENT
  Sex: Male

DRUGS (2)
  1. ALLOPURINOL TAB [Suspect]
     Indication: GOUT
     Route: 048
  2. PROTON PUMP INHIBITOR [Concomitant]

REACTIONS (2)
  - INTESTINAL OBSTRUCTION [None]
  - MEDICATION RESIDUE [None]
